FAERS Safety Report 6355244-9 (Version None)
Quarter: 2009Q3

REPORT INFORMATION
  Report Type: 
  Country: None (occurrence: None)
  Receive Date: 20090909
  Receipt Date: 20090826
  Transmission Date: 20100115
  Serious: Yes (Hospitalization)
  Sender: FDA-Public Use
  Company Number: 8051418

PATIENT
  Age: 75 Year
  Sex: Male

DRUGS (2)
  1. KEPPRA [Suspect]
     Dosage: 1000 MG /D IV
     Route: 042
     Dates: start: 20090504
  2. KEPPRA [Suspect]
     Dosage: 1000 MG /D PO
     Route: 048
     Dates: end: 20090511

REACTIONS (4)
  - HAEMOGLOBIN DECREASED [None]
  - NEUTROPENIA [None]
  - PLATELET COUNT DECREASED [None]
  - WHITE BLOOD CELL COUNT DECREASED [None]
